FAERS Safety Report 9775435 (Version 1)
Quarter: 2013Q4

REPORT INFORMATION
  Report Type: Spontaneous
  Country: US (occurrence: US)
  Receive Date: 20131220
  Receipt Date: 20131220
  Transmission Date: 20140711
  Serious: No
  Sender: FDA-Public Use
  Company Number: US-GALDERMA-US13003413

PATIENT
  Age: 48 Year
  Sex: Female

DRUGS (6)
  1. MIRVASO (BRIMONIDINE) TOPICAL GEL, 0.33% [Suspect]
     Indication: ROSACEA
     Dosage: 0.33%
     Route: 061
     Dates: start: 20131022, end: 20131025
  2. CETAPHIL GENTLE SKIN CLEANSER [Concomitant]
     Indication: THERAPEUTIC SKIN CARE TOPICAL
     Route: 061
  3. MULTIVITAMIN [Concomitant]
     Route: 048
  4. VITAMIN C [Concomitant]
     Route: 048
  5. VITAMIN A [Concomitant]
     Route: 048
  6. VITAMIN D [Concomitant]
     Route: 048

REACTIONS (4)
  - Condition aggravated [Recovering/Resolving]
  - Rash macular [Recovering/Resolving]
  - Feeling cold [Recovered/Resolved]
  - Erythema [Recovering/Resolving]
